FAERS Safety Report 5358991-0 (Version None)
Quarter: 2007Q2

REPORT INFORMATION
  Report Type: 
  Country: None (occurrence: None)
  Receive Date: 20070615
  Receipt Date: 20070607
  Transmission Date: 20071010
  Serious: Yes (Other)
  Sender: FDA-Public Use
  Company Number: US-ROCHE-493269

PATIENT
  Age: 41 Year
  Sex: Female

DRUGS (3)
  1. PEGASYS [Suspect]
     Route: 065
     Dates: start: 20070130
  2. RIBAVIRIN [Suspect]
     Route: 065
     Dates: start: 20070130
  3. ANTIDEPRESSANT NOS [Concomitant]

REACTIONS (14)
  - CRYING [None]
  - DERMATITIS [None]
  - DRY SKIN [None]
  - FATIGUE [None]
  - HYPOMANIA [None]
  - INCREASED APPETITE [None]
  - INFLAMMATION [None]
  - MENORRHAGIA [None]
  - MENTAL IMPAIRMENT [None]
  - ORAL HERPES [None]
  - PHOTOPHOBIA [None]
  - PRURITUS [None]
  - SWELLING FACE [None]
  - WEIGHT INCREASED [None]
